FAERS Safety Report 10527728 (Version 1)
Quarter: 2014Q4

REPORT INFORMATION
  Report Type: Spontaneous
  Country: GB (occurrence: None)
  Receive Date: 20141016
  Receipt Date: 20141016
  Transmission Date: 20150528
  Serious: Yes (Hospitalization)
  Sender: FDA-Public Use
  Company Number: COL_18184_2014

PATIENT
  Age: 62 Year
  Sex: Female
  Weight: 61 kg

DRUGS (3)
  1. COLGATE DURAPHAT [Suspect]
     Active Substance: SODIUM FLUORIDE
     Indication: PRODUCT USED FOR UNKNOWN INDICATION
     Dosage: 3 DF/ DAILY / ORAL
     Route: 048
     Dates: start: 20140908, end: 20140919
  2. RAMIPRIL. [Concomitant]
     Active Substance: RAMIPRIL
  3. BISOPROLOL FUMARATE. [Concomitant]
     Active Substance: BISOPROLOL FUMARATE

REACTIONS (1)
  - Supraventricular tachycardia [None]

NARRATIVE: CASE EVENT DATE: 20140916
